FAERS Safety Report 16622898 (Version 1)
Quarter: 2019Q3

REPORT INFORMATION
  Report Type: Spontaneous
  Country: FR (occurrence: FR)
  Receive Date: 20190723
  Receipt Date: 20190723
  Transmission Date: 20191004
  Serious: Yes (Death, Hospitalization)
  Sender: FDA-Public Use
  Company Number: FR-MYLANLABS-2019M1068274

PATIENT
  Age: 48 Year
  Sex: Male

DRUGS (2)
  1. AVONEX [Suspect]
     Active Substance: INTERFERON BETA-1A
     Indication: MULTIPLE SCLEROSIS
     Dosage: 30 MICROGRAM, QW
     Route: 030
     Dates: start: 2004
  2. ELSEP 2 MG/ML, SOLUTION ? DILUER POUR PERFUSION [Suspect]
     Active Substance: MITOXANTRONE HYDROCHLORIDE
     Indication: MULTIPLE SCLEROSIS
     Dosage: 20.88 MILLIGRAM, MONTHLY
     Route: 042
     Dates: start: 20040701, end: 20041207

REACTIONS (5)
  - Liver disorder [Unknown]
  - Deep vein thrombosis [Unknown]
  - Pulmonary embolism [Recovered/Resolved]
  - Pancreatic injury [Unknown]
  - Cerebrovascular accident [Fatal]

NARRATIVE: CASE EVENT DATE: 20120315
